FAERS Safety Report 10083250 (Version 1)
Quarter: 2014Q2

REPORT INFORMATION
  Report Type: Spontaneous
  Country: US (occurrence: None)
  Receive Date: 20140415
  Receipt Date: 20140415
  Transmission Date: 20141212
  Serious: Yes (Life-Threatening, Hospitalization)
  Sender: FDA-Public Use
  Company Number: 2014P1002937

PATIENT
  Age: 78 Year
  Sex: Male

DRUGS (7)
  1. AMIODARONE [Suspect]
     Indication: ATRIAL FIBRILLATION
  2. WARFARIN [Suspect]
  3. SIMVASTATIN [Concomitant]
  4. METOPROLOL [Concomitant]
  5. TAMSULOSIN [Concomitant]
  6. FINASTERIDE [Concomitant]
  7. ASPIRIN [Concomitant]

REACTIONS (13)
  - Laceration [None]
  - Lip haemorrhage [None]
  - Bradycardia [None]
  - Hypothermia [None]
  - Abdominal distension [None]
  - International normalised ratio increased [None]
  - Unresponsive to stimuli [None]
  - Cardio-respiratory arrest [None]
  - Pericardial effusion [None]
  - Left ventricular dysfunction [None]
  - Haemodynamic instability [None]
  - Myxoedema coma [None]
  - Drug interaction [None]
